FAERS Safety Report 6573714-5 (Version None)
Quarter: 2010Q1

REPORT INFORMATION
  Report Type: 
  Country: None (occurrence: None)
  Receive Date: 20100208
  Receipt Date: 20100129
  Transmission Date: 20100710
  Serious: Yes (Hospitalization)
  Sender: FDA-Public Use
  Company Number: A0842133A

PATIENT
  Age: 28 Year
  Sex: Male

DRUGS (5)
  1. WELLBUTRIN SR [Suspect]
     Indication: SCHIZOAFFECTIVE DISORDER
     Dosage: 150MG TWICE PER DAY
     Route: 048
     Dates: start: 20050101
  2. THORAZINE [Concomitant]
  3. ADDERALL 30 [Concomitant]
  4. TOPAMAX [Concomitant]
  5. EFFEXOR [Concomitant]

REACTIONS (5)
  - DRUG INEFFECTIVE [None]
  - DRUG LEVEL CHANGED [None]
  - FEELING ABNORMAL [None]
  - MEDICATION ERROR [None]
  - PRODUCT SUBSTITUTION ISSUE [None]
